FAERS Safety Report 21839475 (Version 1)
Quarter: 2023Q1

REPORT INFORMATION
  Report Type: Spontaneous
  Country: US (occurrence: US)
  Receive Date: 20230109
  Receipt Date: 20230109
  Transmission Date: 20230417
  Serious: Yes (Hospitalization)
  Sender: FDA-Public Use
  Company Number: US-PRINSTON PHARMACEUTICAL INC.-2022PRN00472

PATIENT
  Age: 53 Year
  Sex: Female

DRUGS (3)
  1. AMPHETAMINE\DEXTROAMPHETAMINE [Suspect]
     Active Substance: AMPHETAMINE\DEXTROAMPHETAMINE
     Indication: Psychiatric disorder prophylaxis
     Dosage: 30 MG, 3X/DAY
  2. VALPROIC ACID [Concomitant]
     Active Substance: VALPROIC ACID
     Indication: Psychiatric disorder prophylaxis
     Dosage: 500 MG, 1X/DAY
  3. VALPROIC ACID [Concomitant]
     Active Substance: VALPROIC ACID
     Dosage: UNK
     Route: 042

REACTIONS (2)
  - Subdural haematoma [Recovered/Resolved]
  - Unresponsive to stimuli [Not Recovered/Not Resolved]
